FAERS Safety Report 9874317 (Version 2)
Quarter: 2014Q1

REPORT INFORMATION
  Report Type: Spontaneous
  Country: US (occurrence: US)
  Receive Date: 20140206
  Receipt Date: 20140206
  Transmission Date: 20141002
  Serious: No
  Sender: FDA-Public Use
  Company Number: US-ACORDA-ACO_34858_2013

PATIENT
  Sex: Female

DRUGS (10)
  1. AMPYRA [Suspect]
     Indication: GAIT DISTURBANCE
     Dosage: 10 MG, DAILY
     Dates: start: 2013, end: 2013
  2. AMPYRA [Suspect]
     Dosage: 10 MG, DAILY, EVERY 3-4 DAYS
     Dates: start: 201301, end: 20130512
  3. PROVENTIL [Concomitant]
     Indication: ASTHMA
     Dosage: UNK, PRN
  4. MAGNESIUM [Concomitant]
     Indication: HYPERTENSION
     Dosage: 0.5 UNK, UNK
  5. POTASSIUM [Concomitant]
     Indication: PRODUCT USED FOR UNKNOWN INDICATION
  6. VITAMIN D [Concomitant]
     Indication: PRODUCT USED FOR UNKNOWN INDICATION
     Dosage: 5000 MG, QD
  7. VITAMIN A [Concomitant]
     Indication: PRODUCT USED FOR UNKNOWN INDICATION
     Dosage: 10000 IU, QD
  8. TURMERIC [Concomitant]
     Indication: ROUTINE HEALTH MAINTENANCE
     Dosage: AFTER MEALS
  9. ZINC [Concomitant]
     Indication: PRODUCT USED FOR UNKNOWN INDICATION
     Dosage: .5 ML, UNK
  10. TRACE MINERALS [Concomitant]
     Indication: PRODUCT USED FOR UNKNOWN INDICATION

REACTIONS (9)
  - Dyspnoea [Unknown]
  - Nervous system disorder [Recovering/Resolving]
  - Paraesthesia [None]
  - Abdominal pain [Recovered/Resolved]
  - Vomiting [Recovered/Resolved]
  - Back pain [Recovered/Resolved]
  - Headache [Recovered/Resolved]
  - Insomnia [Unknown]
  - Nausea [Recovered/Resolved]
